FAERS Safety Report 18220981 (Version 2)
Quarter: 2020Q3

REPORT INFORMATION
  Report Type: Spontaneous
  Country: GB (occurrence: FI)
  Receive Date: 20200902
  Receipt Date: 20200918
  Transmission Date: 20201103
  Serious: Yes (Death, Other)
  Sender: FDA-Public Use
  Company Number: FI-ASTELLAS-2020US029677

PATIENT
  Age: 54 Year
  Sex: Female

DRUGS (2)
  1. TARCEVA [Suspect]
     Active Substance: ERLOTINIB HYDROCHLORIDE
     Route: 048
     Dates: start: 20170901, end: 20170903
  2. TARCEVA [Suspect]
     Active Substance: ERLOTINIB HYDROCHLORIDE
     Indication: LUNG ADENOCARCINOMA
     Dosage: UNK UNK, UNKNOWN FREQ.
     Route: 048
     Dates: start: 20170713, end: 20170825

REACTIONS (9)
  - Vomiting [Unknown]
  - Nausea [Unknown]
  - Thrombocytopenia [Unknown]
  - Stenosis [Unknown]
  - Death [Fatal]
  - Weight decreased [Recovered/Resolved with Sequelae]
  - Dysphagia [Unknown]
  - Loss of consciousness [Unknown]
  - Dyspnoea [Recovered/Resolved with Sequelae]

NARRATIVE: CASE EVENT DATE: 2017
